FAERS Safety Report 5854701-9 (Version None)
Quarter: 2008Q3

REPORT INFORMATION
  Report Type: 
  Country: None (occurrence: None)
  Receive Date: 20080822
  Receipt Date: 20071213
  Transmission Date: 20090109
  Serious: No
  Sender: FDA-Public Use
  Company Number: US-ABBOTT-07P-163-0430138-00

PATIENT
  Sex: Male
  Weight: 83.99 kg

DRUGS (1)
  1. SYNTHROID [Suspect]
     Indication: THYROIDECTOMY
     Route: 048
     Dates: start: 19770101

REACTIONS (7)
  - AGITATION [None]
  - ARRHYTHMIA [None]
  - DEPRESSED MOOD [None]
  - HYPERTHYROIDISM [None]
  - IRRITABILITY [None]
  - LETHARGY [None]
  - TACHYCARDIA [None]
